FAERS Safety Report 24757064 (Version 1)
Quarter: 2024Q4

REPORT INFORMATION
  Report Type: Spontaneous
  Country: NO (occurrence: NO)
  Receive Date: 20241220
  Receipt Date: 20241220
  Transmission Date: 20250114
  Serious: Yes (Congenital Anomaly, Other)
  Sender: GLAXOSMITHKLINE
  Company Number: None

PATIENT

DRUGS (3)
  1. LAMOTRIGINE [Suspect]
     Active Substance: LAMOTRIGINE
     Indication: SUNCT syndrome
     Dosage: 300 MG, BID (CONTINUED USE OF MEDICINAL PRODUCT)
     Route: 065
  2. LAMOTRIGINE [Suspect]
     Active Substance: LAMOTRIGINE
     Indication: Bipolar disorder
  3. LAMOTRIGINE [Suspect]
     Active Substance: LAMOTRIGINE
     Indication: Epilepsy

REACTIONS (6)
  - Hypotonia neonatal [Not Recovered/Not Resolved]
  - Optic nerve hypoplasia [Unknown]
  - Foetal exposure during pregnancy [Not Recovered/Not Resolved]
  - Hypermetropia [Unknown]
  - Haemangioma [Unknown]
  - Lethargy [Unknown]
